FAERS Safety Report 6026459-4 (Version None)
Quarter: 2009Q1

REPORT INFORMATION
  Report Type: 
  Country: None (occurrence: None)
  Receive Date: 20090102
  Receipt Date: 20081222
  Transmission Date: 20090719
  Serious: Yes (Other)
  Sender: FDA-Public Use
  Company Number: JP-PFIZER INC-2008091047

PATIENT

DRUGS (8)
  1. SOLANAX [Suspect]
     Dates: start: 20070710, end: 20070717
  2. AMOXAN [Suspect]
     Indication: DEPRESSION
     Dates: start: 20070626, end: 20070717
  3. IRSOGLADINE MALEATE [Suspect]
     Indication: GASTRIC ULCER
     Dates: start: 20070626, end: 20070717
  4. ERISPAN [Suspect]
     Indication: DEPRESSION
     Dates: start: 20070626, end: 20070717
  5. FLUVOXAMINE [Suspect]
     Indication: DEPRESSION
     Dates: start: 20070626, end: 20070717
  6. ROHYPNOL [Suspect]
     Indication: DEPRESSION
     Route: 048
     Dates: start: 20070709, end: 20070717
  7. SEROQUEL [Suspect]
     Dates: start: 20070709, end: 20070717
  8. DORAL [Suspect]
     Dates: start: 20070626, end: 20070709

REACTIONS (1)
  - DRUG ERUPTION [None]
